FAERS Safety Report 7860528-9 (Version None)
Quarter: 2011Q4

REPORT INFORMATION
  Report Type: 
  Country: None (occurrence: None)
  Receive Date: 20111027
  Receipt Date: 20111024
  Transmission Date: 20120403
  Serious: No
  Sender: FDA-Public Use
  Company Number: US-PFIZER INC-2011258440

PATIENT
  Sex: Male
  Weight: 88.435 kg

DRUGS (1)
  1. ADVIL LIQUI-GELS [Suspect]
     Indication: ARTHRALGIA
     Dosage: 400 MG, 1X/DAY
     Route: 048
     Dates: start: 20040101, end: 20111024

REACTIONS (2)
  - ERYTHEMA [None]
  - PRURITUS [None]
